FAERS Safety Report 19169052 (Version 1)
Quarter: 2021Q2

REPORT INFORMATION
  Report Type: Spontaneous
  Country: US (occurrence: US)
  Receive Date: 20210422
  Receipt Date: 20210422
  Transmission Date: 20210717
  Serious: Yes (Other)
  Sender: FDA-Public Use
  Company Number: US-ASTRAZENECA-2021A337859

PATIENT
  Age: 23224 Day
  Sex: Female
  Weight: 54.4 kg

DRUGS (5)
  1. CALQUENCE [Suspect]
     Active Substance: ACALABRUTINIB
     Indication: CHRONIC LYMPHOCYTIC LEUKAEMIA
     Route: 048
     Dates: start: 20200305
  2. AMITRIPTYLINE [Concomitant]
     Active Substance: AMITRIPTYLINE
     Indication: LEUKAEMIA
     Route: 048
     Dates: start: 2005
  3. AMLODIPINE [Concomitant]
     Active Substance: AMLODIPINE BESYLATE
     Indication: HYPERTENSION
     Route: 048
     Dates: start: 2016
  4. TAMSULOSIN [Concomitant]
     Active Substance: TAMSULOSIN
     Indication: URINE ANALYSIS NORMAL
     Route: 048
     Dates: start: 2005
  5. DIAZEPAM. [Concomitant]
     Active Substance: DIAZEPAM
     Indication: MUSCLE SPASMS
     Dosage: 5.0MG AS REQUIRED
     Route: 048

REACTIONS (5)
  - Procedural nausea [Unknown]
  - Lymphadenopathy [Unknown]
  - Product use issue [Unknown]
  - Cystitis interstitial [Unknown]
  - Illness [Unknown]
